FAERS Safety Report 7681414-3 (Version None)
Quarter: 2011Q3

REPORT INFORMATION
  Report Type: 
  Country: None (occurrence: None)
  Receive Date: 20110812
  Receipt Date: 20110729
  Transmission Date: 20111222
  Serious: Yes (Hospitalization)
  Sender: FDA-Public Use
  Company Number: US-UCBSA-012813

PATIENT
  Sex: Female
  Weight: 75.74 kg

DRUGS (6)
  1. LACOSAMIDE [Suspect]
     Indication: EPILEPSY
     Dosage: KIT NO: 31135
     Route: 048
     Dates: start: 20100421, end: 20100526
  2. PHENYTOIN [Concomitant]
     Indication: EPILEPSY
     Dates: start: 19800101, end: 20100501
  3. PHENYTOIN [Concomitant]
     Dates: start: 20100530
  4. DILANTIN XL [Concomitant]
     Route: 048
  5. DILANTIN XL [Concomitant]
     Dosage: PAST 40 YEARS
  6. TOPAMAX [Suspect]

REACTIONS (2)
  - STATUS EPILEPTICUS [None]
  - TOXIC ENCEPHALOPATHY [None]
